FAERS Safety Report 8852728 (Version 1)
Quarter: 2012Q4

REPORT INFORMATION
  Report Type: 
  Country: US (occurrence: US)
  Receive Date: 20121022
  Receipt Date: 20121022
  Transmission Date: 20130627
  Serious: Yes (Other)
  Sender: FDA-Public Use
  Company Number: US-ASTRAZENECA-2012SE78984

PATIENT
  Age: 67 Year
  Sex: Female
  Weight: 79.4 kg

DRUGS (6)
  1. PULMICORT RESPULES [Suspect]
     Indication: PRODUCTIVE COUGH
     Route: 055
     Dates: start: 20121011, end: 20121011
  2. ALBUTEROL SULFATE [Concomitant]
     Dosage: PRN
     Route: 055
  3. THYROID PILL [Concomitant]
     Indication: THYROID DISORDER
  4. VITAMINS [Concomitant]
  5. CIPROFLOXACIN [Concomitant]
     Indication: PNEUMONIA
     Route: 048
  6. TARKA [Concomitant]
     Indication: HYPERTENSION
     Route: 048

REACTIONS (9)
  - Hypotension [Unknown]
  - Insomnia [Unknown]
  - Hallucination [Unknown]
  - Nasal congestion [Unknown]
  - Ear congestion [Unknown]
  - Drug intolerance [Unknown]
  - Dysphonia [Unknown]
  - Off label use [Unknown]
  - Off label use [Unknown]
